FAERS Safety Report 12116519 (Version 3)
Quarter: 2016Q3

REPORT INFORMATION
  Report Type: Spontaneous
  Country: US (occurrence: US)
  Receive Date: 20160225
  Receipt Date: 20160920
  Transmission Date: 20161109
  Serious: No
  Sender: FDA-Public Use
  Company Number: US-ASTRAZENECA-2016SE16558

PATIENT
  Sex: Male
  Weight: 90.7 kg

DRUGS (3)
  1. BRILINTA [Suspect]
     Active Substance: TICAGRELOR
     Indication: STENT PLACEMENT
     Route: 048
     Dates: start: 201601
  2. BRILINTA [Suspect]
     Active Substance: TICAGRELOR
     Indication: ACUTE CORONARY SYNDROME
     Route: 048
     Dates: start: 201601
  3. TWO BLOOD PRESSURE MEDICATIONS [Concomitant]

REACTIONS (7)
  - Procedural haemorrhage [Unknown]
  - Limb discomfort [Unknown]
  - Fatigue [Unknown]
  - Oedema peripheral [Unknown]
  - Stress [Unknown]
  - Skin mass [Unknown]
  - Contusion [Unknown]
